FAERS Safety Report 10074646 (Version 2)
Quarter: 2014Q2

REPORT INFORMATION
  Report Type: Spontaneous
  Country: NL (occurrence: NL)
  Receive Date: 20140414
  Receipt Date: 20140608
  Transmission Date: 20141212
  Serious: Yes (Death, Hospitalization)
  Sender: FDA-Public Use
  Company Number: NL-AMGEN-NLDSP2013092774

PATIENT
  Age: 89 Year
  Sex: Male

DRUGS (2)
  1. NEULASTA [Suspect]
     Indication: PROPHYLAXIS
     Dosage: 6 MG, 1X3W
     Route: 058
     Dates: start: 20121010, end: 20130304
  2. ARANESP [Suspect]
     Indication: NEPHROGENIC ANAEMIA
     Dosage: 50 MUG, 1X2W
     Route: 058
     Dates: start: 20130104, end: 20130215

REACTIONS (2)
  - Death [Fatal]
  - Investigation [Unknown]
